FAERS Safety Report 8015520-0 (Version None)
Quarter: 2011Q4

REPORT INFORMATION
  Report Type: 
  Country: None (occurrence: None)
  Receive Date: 20111227
  Receipt Date: 20111227
  Transmission Date: 20120403
  Serious: Yes (Hospitalization)
  Sender: FDA-Public Use
  Company Number: None

PATIENT
  Sex: Male
  Weight: 102.1 kg

DRUGS (2)
  1. IMEXON (AMPLIMEXON) [Suspect]
     Indication: RECURRENT CANCER
     Dosage: 2,310 MG EVERY 3 WEEKS INTRAVENOUS (CYCLE 1 7-18-11 (DAY 1) TO CYCLE 8 DY 1 12-12-11)
     Route: 042
  2. IMEXON (AMPLIMEXON) [Suspect]
     Indication: LYMPHOMA
     Dosage: 2,310 MG EVERY 3 WEEKS INTRAVENOUS (CYCLE 1 7-18-11 (DAY 1) TO CYCLE 8 DY 1 12-12-11)
     Route: 042

REACTIONS (4)
  - VOMITING [None]
  - CHILLS [None]
  - REFUSAL OF TREATMENT BY PATIENT [None]
  - NO THERAPEUTIC RESPONSE [None]
